FAERS Safety Report 9254026 (Version 6)
Quarter: 2014Q1

REPORT INFORMATION
  Report Type: Spontaneous
  Country: DE (occurrence: DE)
  Receive Date: 20130425
  Receipt Date: 20140211
  Transmission Date: 20141002
  Serious: Yes (Life-Threatening, Other)
  Sender: FDA-Public Use
  Company Number: DE-MPIJNJ-2013-02676

PATIENT
  Sex: 0

DRUGS (3)
  1. VELCADE [Suspect]
     Indication: PLASMA CELL MYELOMA
     Dosage: 2.4 MG, UNK
     Route: 042
     Dates: start: 20130326, end: 20130402
  2. CYCLOPHOSPHAMIDE [Concomitant]
     Indication: PLASMA CELL MYELOMA
     Dosage: 690 MG, UNK
     Route: 042
     Dates: start: 20130326
  3. DEXAMETHASONE [Concomitant]
     Dosage: 40 MG, UNK
     Route: 048
     Dates: start: 20130326, end: 20130402

REACTIONS (5)
  - Posterior reversible encephalopathy syndrome [Not Recovered/Not Resolved]
  - Pulmonary oedema [Unknown]
  - Delirium [Unknown]
  - Hypertensive crisis [Unknown]
  - Anaemia [Unknown]
